FAERS Safety Report 8826030 (Version 1)
Quarter: 2012Q4

REPORT INFORMATION
  Report Type: 
  Country: US (occurrence: US)
  Receive Date: 20121005
  Receipt Date: 20121005
  Transmission Date: 20130627
  Serious: Yes (Other)
  Sender: FDA-Public Use
  Company Number: US-PFIZER INC-2012244627

PATIENT
  Sex: Female

DRUGS (2)
  1. XANAX [Suspect]
     Dosage: UNK
  2. ZOLOFT [Suspect]
     Dosage: UNK

REACTIONS (8)
  - Aggression [Unknown]
  - Drug withdrawal syndrome [Unknown]
  - Anger [Unknown]
  - Amnesia [Unknown]
  - Abnormal behaviour [Unknown]
  - Depersonalisation [Unknown]
  - Derealisation [Unknown]
  - Pain [Unknown]
